FAERS Safety Report 7207543-6 (Version None)
Quarter: 2011Q1

REPORT INFORMATION
  Report Type: 
  Country: None (occurrence: None)
  Receive Date: 20110103
  Receipt Date: 20101222
  Transmission Date: 20110831
  Serious: Yes (Other)
  Sender: FDA-Public Use
  Company Number: BR-ASTRAZENECA-2010SE60645

PATIENT
  Age: 61 Year
  Sex: Female
  Weight: 59 kg

DRUGS (5)
  1. NEXIUM [Suspect]
     Indication: REFLUX OESOPHAGITIS
     Route: 048
     Dates: start: 20050101, end: 20090101
  2. NEXIUM [Suspect]
     Indication: GASTRITIS
     Route: 048
     Dates: start: 20050101, end: 20090101
  3. ATACAND [Suspect]
     Indication: HYPERTENSION
     Route: 048
     Dates: start: 20100401, end: 20101201
  4. ATACAND COMB [Suspect]
     Indication: HYPERTENSION
     Dosage: 16/5 MG
     Route: 048
     Dates: start: 20101201
  5. SYNTHROID [Concomitant]
     Route: 048
     Dates: start: 19900101

REACTIONS (7)
  - BURNING SENSATION [None]
  - NECK PAIN [None]
  - HYPOAESTHESIA [None]
  - BLOOD PRESSURE ABNORMAL [None]
  - DIZZINESS [None]
  - DRUG DOSE OMISSION [None]
  - OSTEOPOROSIS [None]
